FAERS Safety Report 22276091 (Version 1)
Quarter: 2023Q2

REPORT INFORMATION
  Report Type: Spontaneous
  Country: US (occurrence: US)
  Receive Date: 20230502
  Receipt Date: 20230502
  Transmission Date: 20230721
  Serious: No
  Sender: FDA-Public Use
  Company Number: US-LUNDBECK-DKLU3060401

PATIENT
  Age: 6 Decade
  Sex: Female

DRUGS (1)
  1. VYEPTI [Suspect]
     Active Substance: EPTINEZUMAB-JJMR
     Indication: Migraine prophylaxis
     Route: 041
     Dates: start: 20230329

REACTIONS (3)
  - Infusion site rash [Unknown]
  - Rash [Unknown]
  - Fungal infection [Unknown]

NARRATIVE: CASE EVENT DATE: 20230329
